FAERS Safety Report 24132403 (Version 1)
Quarter: 2024Q3

REPORT INFORMATION
  Report Type: Spontaneous
  Country: ES (occurrence: ES)
  Receive Date: 20240724
  Receipt Date: 20240724
  Transmission Date: 20241016
  Serious: Yes (Other)
  Sender: FRESENIUS KABI
  Company Number: ES-PFIZER INC-PV202400083599

PATIENT
  Age: 8 Year
  Sex: Female

DRUGS (10)
  1. CYTARABINE [Suspect]
     Active Substance: CYTARABINE
     Indication: Leukaemia
     Dosage: 24 MG, ONCE REGIMEN #1
     Route: 037
     Dates: start: 20240605, end: 20240605
  2. PEGASPARGASE [Suspect]
     Active Substance: PEGASPARGASE
     Indication: Leukaemia
     Dosage: 900 IU, TWICE?REGIMEN #1?FOA-SOLUTION FOR INFUSION
     Route: 042
     Dates: start: 20240531, end: 20240614
  3. HYDROCORTISONE SODIUM PHOSPHATE [Suspect]
     Active Substance: HYDROCORTISONE SODIUM PHOSPHATE
     Indication: Leukaemia
     Dosage: 12 MG, ONCE?REGIMEN #1
     Route: 037
     Dates: start: 20240605, end: 20240605
  4. DEXAMETHASONE [Suspect]
     Active Substance: DEXAMETHASONE
     Indication: Leukaemia
     Dosage: 9 MG, BID?REGIMEN #1?FOA-SOLUTION FOR INFUSION
     Route: 042
     Dates: start: 20240529, end: 20240616
  5. MITOXANTRONE HYDROCHLORIDE [Suspect]
     Active Substance: MITOXANTRONE HYDROCHLORIDE
     Indication: Leukaemia
     Dosage: 9 MG, QD?FOA-SOLUTION FOR INFUSION
     Route: 042
     Dates: start: 20240529, end: 20240530
  6. METHOTREXATE [Suspect]
     Active Substance: METHOTREXATE
     Indication: Leukaemia
     Dosage: 12 MG, ONCE
     Route: 037
     Dates: start: 20240605, end: 20240605
  7. VINCRISTINE SULFATE [Suspect]
     Active Substance: VINCRISTINE SULFATE
     Indication: Leukaemia
     Dosage: 1.3 MG, EVERY WEEK?FOA-SOLUTION FOR INFUSION
     Route: 042
     Dates: start: 20240531
  8. VINCRISTINE SULFATE [Suspect]
     Active Substance: VINCRISTINE SULFATE
     Dosage: 1.3 MG, EVERY WEEK?REGIMEN #1?FOA-SOLUTION FOR INFUSION
     Route: 042
     Dates: end: 20240514
  9. DEFIBROTIDE [Concomitant]
     Active Substance: DEFIBROTIDE (BOVINE)
     Indication: Prophylaxis
     Route: 042
     Dates: start: 20240621
  10. URSODIOL [Concomitant]
     Active Substance: URSODIOL
     Indication: Prophylaxis
     Dosage: FOA-CAPSULE
     Route: 048
     Dates: start: 20240621

REACTIONS (1)
  - Venoocclusive liver disease [Recovered/Resolved]

NARRATIVE: CASE EVENT DATE: 20240625
